FAERS Safety Report 9858637 (Version 1)
Quarter: 2014Q1

REPORT INFORMATION
  Report Type: Spontaneous
  Country: US (occurrence: None)
  Receive Date: 20140130
  Receipt Date: 20140130
  Transmission Date: 20141002
  Serious: Yes (Disabling)
  Sender: FDA-Public Use
  Company Number: None

PATIENT
  Age: 57 Year
  Sex: Male
  Weight: 68.04 kg

DRUGS (2)
  1. BRINTELLIX [Suspect]
     Indication: MAJOR DEPRESSION
     Dosage: 1 TAB QD ORAL
     Dates: start: 20131218, end: 20140129
  2. SEROQUEL [Concomitant]

REACTIONS (2)
  - Dry mouth [None]
  - Gingival recession [None]
